FAERS Safety Report 12205202 (Version 1)
Quarter: 2016Q1

REPORT INFORMATION
  Report Type: Spontaneous
  Country: FR (occurrence: FR)
  Receive Date: 20160323
  Receipt Date: 20160323
  Transmission Date: 20160526
  Serious: Yes (Hospitalization)
  Sender: FDA-Public Use
  Company Number: FR-ASTRAZENECA-2016SE29908

PATIENT
  Age: 32828 Day
  Sex: Female

DRUGS (21)
  1. DISCOTRINE [Concomitant]
     Active Substance: NITROGLYCERIN
  2. IMOVANE [Concomitant]
     Active Substance: ZOPICLONE
  3. BISOPROLOL [Concomitant]
     Active Substance: BISOPROLOL
  4. LASILIX [Concomitant]
     Active Substance: FUROSEMIDE
  5. LEXOMIL ROCHE [Concomitant]
     Active Substance: BROMAZEPAM
  6. LOVENOX [Concomitant]
     Active Substance: ENOXAPARIN SODIUM
  7. CEFTRIAXONE. [Suspect]
     Active Substance: CEFTRIAXONE
     Indication: LUNG INFECTION
     Route: 030
     Dates: start: 20160208, end: 20160214
  8. RIFAMYCINE [Suspect]
     Active Substance: RIFAMYCIN SODIUM
     Route: 047
     Dates: start: 20160206, end: 20160214
  9. PRAVASTATIN [Concomitant]
     Active Substance: PRAVASTATIN\PRAVASTATIN SODIUM
  10. PROCORALAN [Concomitant]
     Active Substance: IVABRADINE
  11. SEROPLEX [Concomitant]
     Active Substance: ESCITALOPRAM OXALATE
  12. LACRIFLUID [Concomitant]
     Active Substance: CARBOMER
  13. DOLIPRANE [Concomitant]
     Active Substance: ACETAMINOPHEN
  14. TARDYFERON [Concomitant]
     Active Substance: FERROUS SULFATE\FOLIC ACID
  15. KARDEGIC [Concomitant]
     Active Substance: ASPIRIN LYSINE
  16. PANTOPRAZOLE [Concomitant]
     Active Substance: PANTOPRAZOLE SODIUM
  17. BRICANYL [Suspect]
     Active Substance: TERBUTALINE SULFATE
     Indication: BRONCHITIS
     Route: 055
     Dates: start: 20160204, end: 20160214
  18. DACRYOSERUM [Concomitant]
     Active Substance: BORIC ACID\SODIUM BORATE
  19. PULMICORT TURBUHALER [Suspect]
     Active Substance: BUDESONIDE
     Indication: BRONCHITIS
     Route: 055
     Dates: start: 20160204, end: 20160214
  20. DIFFU K [Concomitant]
     Active Substance: POTASSIUM CHLORIDE
  21. IKOREL [Concomitant]
     Active Substance: NICORANDIL

REACTIONS (7)
  - Toxic skin eruption [Unknown]
  - Off label use [Recovered/Resolved]
  - Pruritus [Recovering/Resolving]
  - Rash pustular [Recovering/Resolving]
  - Product use issue [Recovered/Resolved]
  - Rash maculo-papular [Recovering/Resolving]
  - Purpura senile [Unknown]

NARRATIVE: CASE EVENT DATE: 20160204
